FAERS Safety Report 21948931 (Version 1)
Quarter: 2023Q1

REPORT INFORMATION
  Report Type: Spontaneous
  Country: AU (occurrence: AU)
  Receive Date: 20230203
  Receipt Date: 20230203
  Transmission Date: 20230418
  Serious: Yes (Other)
  Sender: FDA-Public Use
  Company Number: AU-CIPLA LTD.-2023AU00540

PATIENT

DRUGS (1)
  1. PREGABALIN [Suspect]
     Active Substance: PREGABALIN
     Indication: Pain
     Dosage: UNK UNK, BID (TWO CAPSULES  IN THE MORNING AND TWO CAPSULES AT NIGHT)
     Route: 065

REACTIONS (1)
  - Intentional overdose [Not Recovered/Not Resolved]
